FAERS Safety Report 15655239 (Version 2)
Quarter: 2019Q3

REPORT INFORMATION
  Report Type: Report from Study
  Country: CA (occurrence: CA)
  Receive Date: 20181126
  Receipt Date: 20190801
  Transmission Date: 20191004
  Serious: Yes (Hospitalization, Other)
  Sender: FDA-Public Use
  Company Number: CA-BRISTOL-MYERS SQUIBB COMPANY-BMS-2018-017172

PATIENT
  Age: 51 Year
  Sex: Male

DRUGS (1)
  1. ABATACEPT [Suspect]
     Active Substance: ABATACEPT
     Indication: RHEUMATOID ARTHRITIS
     Dosage: 750 MG, Q4WK
     Route: 042
     Dates: start: 20110209

REACTIONS (8)
  - Cerebrovascular accident [Unknown]
  - Lung abscess [Unknown]
  - Facial paralysis [Unknown]
  - Hospitalisation [Unknown]
  - Pain [Unknown]
  - Bronchitis [Recovered/Resolved]
  - Pneumonia [Unknown]
  - Monoplegia [Unknown]

NARRATIVE: CASE EVENT DATE: 201809
